FAERS Safety Report 6638761-3 (Version None)
Quarter: 2010Q1

REPORT INFORMATION
  Report Type: 
  Country: None (occurrence: None)
  Receive Date: 20100317
  Receipt Date: 20100308
  Transmission Date: 20100710
  Serious: Yes (Hospitalization)
  Sender: FDA-Public Use
  Company Number: GB-PFIZER INC-2010012790

PATIENT
  Age: 22 Year
  Sex: Female
  Weight: 60.5 kg

DRUGS (3)
  1. DEPO-PROVERA [Suspect]
     Indication: CONTRACEPTION
     Dosage: FIRST INJECTION, EVERY 12 WEEKS
     Route: 030
     Dates: start: 20090803, end: 20090803
  2. DEPO-PROVERA [Suspect]
     Dosage: SECOND INJECTION, EVERY 12 WEEKS
     Route: 030
     Dates: start: 20091020, end: 20091020
  3. DEPO-PROVERA [Suspect]
     Dosage: LAST INJECTION
     Route: 030
     Dates: start: 20090104, end: 20090104

REACTIONS (3)
  - ABORTION SPONTANEOUS [None]
  - DRUG INEFFECTIVE [None]
  - UNINTENDED PREGNANCY [None]
